FAERS Safety Report 6088445-8 (Version None)
Quarter: 2009Q1

REPORT INFORMATION
  Report Type: 
  Country: None (occurrence: None)
  Receive Date: 20090224
  Receipt Date: 20090216
  Transmission Date: 20090719
  Serious: Yes (Hospitalization)
  Sender: FDA-Public Use
  Company Number: US-PFIZER INC-2009171264

PATIENT
  Sex: Female
  Weight: 68 kg

DRUGS (2)
  1. CELEBREX [Suspect]
     Indication: OSTEOPOROSIS
     Route: 048
  2. LEVOXYL [Concomitant]

REACTIONS (6)
  - BLOOD IRON DECREASED [None]
  - DYSSTASIA [None]
  - MYALGIA [None]
  - PAIN [None]
  - SYNOVITIS [None]
  - WEIGHT INCREASED [None]
